FAERS Safety Report 11999080 (Version 1)
Quarter: 2016Q1

REPORT INFORMATION
  Report Type: Spontaneous
  Country: US (occurrence: None)
  Receive Date: 20160203
  Receipt Date: 20160203
  Transmission Date: 20160526
  Serious: Yes (Other)
  Sender: FDA-Public Use
  Company Number: None

PATIENT
  Age: 82 Year
  Sex: Male

DRUGS (1)
  1. XTANDI [Suspect]
     Active Substance: ENZALUTAMIDE
     Indication: PROSTATE CANCER
     Dosage: 4 CAPSULES QD ORAL
     Route: 048
     Dates: start: 20151211, end: 20160202

REACTIONS (2)
  - Confusional state [None]
  - Disturbance in attention [None]

NARRATIVE: CASE EVENT DATE: 20160202
